FAERS Safety Report 5887454-9 (Version None)
Quarter: 2008Q3

REPORT INFORMATION
  Report Type: 
  Country: None (occurrence: None)
  Receive Date: 20080918
  Receipt Date: 20080909
  Transmission Date: 20090109
  Serious: Yes (Other)
  Sender: FDA-Public Use
  Company Number: DE-BAXTER-2008BH009384

PATIENT
  Age: 86 Year
  Sex: Female
  Weight: 40 kg

DRUGS (5)
  1. GLUCOSE (DEXTROSE) SOLUTION FOR INTRAVENOUS INFUSION 70% [Suspect]
     Indication: PARENTERAL NUTRITION
     Route: 065
     Dates: start: 20080728, end: 20080728
  2. INTRAFUSIN 15% [Suspect]
     Indication: PARENTERAL NUTRITION
     Route: 065
     Dates: start: 20080728, end: 20080728
  3. CLINOLEIC 20% [Suspect]
     Indication: PARENTERAL NUTRITION
     Route: 065
     Dates: start: 20080728, end: 20080728
  4. TPN ELECTROLYTES IN PLASTIC CONTAINER [Concomitant]
  5. SOLUVIT N [Concomitant]

REACTIONS (1)
  - CHILLS [None]
